FAERS Safety Report 6920909-4 (Version None)
Quarter: 2010Q3

REPORT INFORMATION
  Report Type: 
  Country: None (occurrence: None)
  Receive Date: 20100812
  Receipt Date: 20100809
  Transmission Date: 20110219
  Serious: Yes (Death, Hospitalization)
  Sender: FDA-Public Use
  Company Number: US-ASTRAZENECA-2010SE01710

PATIENT
  Age: 93 Year
  Sex: Female

DRUGS (9)
  1. SEROQUEL [Suspect]
     Indication: ABNORMAL BEHAVIOUR
     Route: 048
     Dates: start: 20080101
  2. SEROQUEL [Suspect]
     Route: 048
     Dates: start: 20080101
  3. ARICEPT [Concomitant]
  4. ASPIRIN [Concomitant]
  5. DIAZIDE [Concomitant]
  6. NAMENA [Concomitant]
  7. NORVASC [Concomitant]
  8. REMERON [Concomitant]
  9. SYNTHROID [Concomitant]

REACTIONS (4)
  - CORONARY ARTERY DISEASE [None]
  - MENTAL DISORDER [None]
  - SEDATION [None]
  - URINARY TRACT INFECTION [None]
